FAERS Safety Report 5022145-8 (Version None)
Quarter: 2006Q2

REPORT INFORMATION
  Report Type: 
  Country: None (occurrence: None)
  Receive Date: 20060428
  Receipt Date: 20060117
  Transmission Date: 20061013
  Serious: Yes (Death)
  Sender: FDA-Public Use
  Company Number: COT_0381_2006

PATIENT
  Age: 72 Year
  Sex: Female
  Weight: 48.9885 kg

DRUGS (12)
  1. VENTAVIS [Suspect]
     Indication: PULMONARY HYPERTENSION
     Dosage: 5 MCG 6XD IH
     Dates: start: 20060104
  2. PROTONIX [Concomitant]
  3. LEVAQUIN [Concomitant]
  4. SYNTHROID [Concomitant]
  5. LOVENOX [Concomitant]
  6. ALBUTEROL [Concomitant]
  7. ATROVENT [Concomitant]
  8. COUMADIN [Concomitant]
  9. EVISTA [Concomitant]
  10. POTASSIUM CHLORIDE [Concomitant]
  11. MS CONTIN [Concomitant]
  12. TRANXENE [Concomitant]

REACTIONS (2)
  - CONDITION AGGRAVATED [None]
  - PULMONARY HYPERTENSION [None]
